FAERS Safety Report 23037466 (Version 1)
Quarter: 2023Q4

REPORT INFORMATION
  Report Type: Report from Study
  Country: CO (occurrence: CO)
  Receive Date: 20231006
  Receipt Date: 20231006
  Transmission Date: 20240109
  Serious: Yes (Hospitalization, Other)
  Sender: FDA-Public Use
  Company Number: CO-UCBSA-2023048049

PATIENT
  Age: 25 Year
  Sex: Male
  Weight: 75 kg

DRUGS (3)
  1. BRIVARACETAM [Suspect]
     Active Substance: BRIVARACETAM
     Indication: Epilepsy
     Dosage: 100 MILLIGRAM, 2X/DAY (BID) 12 HOURS
     Route: 048
     Dates: start: 20230801, end: 20230926
  2. FERBIN [VALPROIC ACID] [Concomitant]
     Indication: Epilepsy
     Dosage: UNK, 8 HOURS
     Route: 048
  3. EPAMIN [PHENYTOIN] [Concomitant]
     Indication: Epilepsy
     Dosage: UNK  12 HOURS
     Route: 048

REACTIONS (2)
  - Seizure [Recovering/Resolving]
  - Asthenia [Recovering/Resolving]

NARRATIVE: CASE EVENT DATE: 20230926
